FAERS Safety Report 4839596-4 (Version None)
Quarter: 2005Q4

REPORT INFORMATION
  Report Type: 
  Country: None (occurrence: None)
  Receive Date: 20051125
  Receipt Date: 20051109
  Transmission Date: 20060501
  Serious: Yes (Hospitalization)
  Sender: FDA-Public Use
  Company Number: 219333

PATIENT
  Age: 40 Year
  Sex: Female

DRUGS (3)
  1. RAPTIVA [Suspect]
     Indication: PSORIASIS
     Dosage: 0.14, 1/WEEK, SUBCUTANEOUS
     Route: 058
     Dates: end: 20051018
  2. LEVOTHYROXINE SODIUM [Concomitant]
  3. TRAMADOL HCL [Concomitant]

REACTIONS (9)
  - ARTHRALGIA [None]
  - CONDITION AGGRAVATED [None]
  - JOINT SWELLING [None]
  - MYCOPLASMA INFECTION [None]
  - PAIN [None]
  - PAIN IN EXTREMITY [None]
  - PHARYNGITIS STREPTOCOCCAL [None]
  - PSORIASIS [None]
  - STAPHYLOCOCCAL INFECTION [None]
